FAERS Safety Report 5481633-0 (Version None)
Quarter: 2007Q4

REPORT INFORMATION
  Report Type: 
  Country: None (occurrence: None)
  Receive Date: 20071004
  Receipt Date: 20070927
  Transmission Date: 20080405
  Serious: Yes (Hospitalization)
  Sender: FDA-Public Use
  Company Number: SP01518

PATIENT
  Age: 58 Year
  Sex: Female
  Weight: 72.5755 kg

DRUGS (4)
  1. OSMOPREP [Suspect]
     Indication: COLONOSCOPY
     Dosage: ORAL
     Route: 048
     Dates: start: 20070326, end: 20070326
  2. LISINOPRIL [Concomitant]
  3. ASACOL [Concomitant]
  4. IBUPROFEN [Concomitant]

REACTIONS (7)
  - ARTERIOSCLEROSIS [None]
  - KIDNEY FIBROSIS [None]
  - NEPHROCALCINOSIS [None]
  - NEPHROSCLEROSIS [None]
  - PROCEDURAL PAIN [None]
  - RENAL FAILURE ACUTE [None]
  - RENAL TUBULAR ATROPHY [None]
